FAERS Safety Report 4782725-1 (Version None)
Quarter: 2005Q3

REPORT INFORMATION
  Report Type: 
  Country: None (occurrence: None)
  Receive Date: 20050929
  Receipt Date: 20050826
  Transmission Date: 20060218
  Serious: Yes (Hospitalization)
  Sender: FDA-Public Use
  Company Number: 415681

PATIENT
  Age: 75 Year
  Sex: Female

DRUGS (2)
  1. COREG [Suspect]
     Route: 048
  2. DIGOXIN [Concomitant]

REACTIONS (2)
  - PLATELET COUNT DECREASED [None]
  - RASH GENERALISED [None]
